FAERS Safety Report 8453080-0 (Version None)
Quarter: 2012Q2

REPORT INFORMATION
  Report Type: 
  Country: None (occurrence: None)
  Receive Date: 20120620
  Receipt Date: 20120507
  Transmission Date: 20120825
  Serious: No
  Sender: FDA-Public Use
  Company Number: US-VERTEX PHARMACEUTICALS INC.-AE-2012-006575

PATIENT
  Sex: Male
  Weight: 90.8 kg

DRUGS (3)
  1. INCIVEK [Suspect]
     Indication: HEPATITIS C
     Route: 048
     Dates: start: 20111219, end: 20120101
  2. PEGASYS [Concomitant]
     Indication: HEPATITIS C
     Dates: start: 20111219, end: 20120101
  3. RIBAVIRIN [Concomitant]
     Indication: HEPATITIS C
     Dates: start: 20111219, end: 20120101

REACTIONS (8)
  - POLLAKIURIA [None]
  - VOMITING [None]
  - FEELING OF BODY TEMPERATURE CHANGE [None]
  - NASAL CONGESTION [None]
  - ABDOMINAL PAIN [None]
  - WEIGHT DECREASED [None]
  - DECREASED APPETITE [None]
  - HYPERHIDROSIS [None]
